FAERS Safety Report 20695428 (Version 2)
Quarter: 2022Q3

REPORT INFORMATION
  Report Type: Spontaneous
  Country: BR (occurrence: BR)
  Receive Date: 20220411
  Receipt Date: 20220829
  Transmission Date: 20221027
  Serious: Yes (Other)
  Sender: FDA-Public Use
  Company Number: BR-ABBVIE-22K-020-4352103-00

PATIENT
  Sex: Female
  Weight: 59 kg

DRUGS (12)
  1. HUMIRA [Suspect]
     Active Substance: ADALIMUMAB
     Indication: Psoriatic arthropathy
     Route: 058
     Dates: start: 20211029, end: 2022
  2. HUMIRA [Suspect]
     Active Substance: ADALIMUMAB
     Route: 058
     Dates: start: 20220814
  3. METHOTREXATE [Concomitant]
     Active Substance: METHOTREXATE
     Indication: Autoimmune disorder
  4. LYRICA [Concomitant]
     Active Substance: PREGABALIN
     Indication: Pain
  5. TOPIRAMATE [Concomitant]
     Active Substance: TOPIRAMATE
     Indication: Product used for unknown indication
  6. FLUXTAR [Concomitant]
     Indication: Insomnia
  7. PREDNISOLONE [Concomitant]
     Active Substance: PREDNISOLONE
     Indication: Autoimmune disorder
     Dosage: 2.5 MG OR 5 MG, EVERY OTHER DAY
  8. FOLIC ACID [Concomitant]
     Active Substance: FOLIC ACID
     Indication: Product used for unknown indication
     Dosage: 1 TABLET EVERY SATURDAY
  9. METFORMIN HYDROCHLORIDE [Concomitant]
     Active Substance: METFORMIN HYDROCHLORIDE
     Indication: Insulin resistance
     Dosage: 2 TABLETS
  10. METFORMIN HYDROCHLORIDE [Concomitant]
     Active Substance: METFORMIN HYDROCHLORIDE
     Indication: Type 2 diabetes mellitus
  11. ZOLPIDEM TARTRATE [Concomitant]
     Active Substance: ZOLPIDEM TARTRATE
     Indication: Insomnia
  12. MELATONIN [Concomitant]
     Active Substance: MELATONIN
     Indication: Vitamin supplementation
     Dosage: 2 CAPSULES

REACTIONS (4)
  - Temporomandibular joint syndrome [Unknown]
  - Oxygen saturation abnormal [Unknown]
  - Malaise [Unknown]
  - Influenza [Unknown]

NARRATIVE: CASE EVENT DATE: 20220101
